FAERS Safety Report 6087040-4 (Version None)
Quarter: 2009Q1

REPORT INFORMATION
  Report Type: 
  Country: None (occurrence: None)
  Receive Date: 20090223
  Receipt Date: 20090216
  Transmission Date: 20090719
  Serious: Yes (Other)
  Sender: FDA-Public Use
  Company Number: PHHY2009DE06042

PATIENT
  Sex: Female

DRUGS (5)
  1. RASILEZ [Suspect]
     Indication: HYPERTENSION
     Dosage: 150 MG, ONCE/SINGLE
     Route: 048
     Dates: start: 20080801
  2. RASILEZ [Suspect]
     Dosage: 300 MG, UNK
     Dates: start: 20090217
  3. CONCOR [Concomitant]
     Dosage: 5 MG, UNK
     Route: 048
     Dates: start: 20080801
  4. IRBESARTAN [Concomitant]
     Dosage: 300 MG, ONCE/SINGLE
     Route: 048
  5. ASS ^CT-ARZNEIMITTEL^ [Concomitant]
     Dosage: 100 MG, ONCE/SINGLE
     Route: 048

REACTIONS (7)
  - BLOOD PRESSURE FLUCTUATION [None]
  - BLOOD PRESSURE INCREASED [None]
  - DIZZINESS [None]
  - HEADACHE [None]
  - HYPERTENSIVE CRISIS [None]
  - PALPITATIONS [None]
  - TACHYCARDIA [None]
